FAERS Safety Report 24068728 (Version 2)
Quarter: 2024Q3

REPORT INFORMATION
  Report Type: Spontaneous
  Country: IN (occurrence: IN)
  Receive Date: 20240710
  Receipt Date: 20240710
  Transmission Date: 20241017
  Serious: No
  Sender: ROCHE
  Company Number: IN-ROCHE-3497613

PATIENT
  Age: 89 Year
  Sex: Female

DRUGS (4)
  1. VABYSMO [Suspect]
     Active Substance: FARICIMAB\FARICIMAB-SVOA
     Indication: Choroidal neovascularisation
     Route: 050
     Dates: start: 20240123
  2. BROMFENAC [Concomitant]
     Active Substance: BROMFENAC
     Dosage: 1 DROP 2 TIMES IN A DAY FOR 60 DAYS
     Route: 047
     Dates: start: 20240122
  3. MOXIFLOXACIN [Concomitant]
     Active Substance: MOXIFLOXACIN
     Dosage: 1 DROP 4 TIMES IN A DAY FOR 5 DAYS
     Route: 047
     Dates: start: 20240122
  4. REFRESH LIQUIGEL [Concomitant]
     Active Substance: CARBOXYMETHYLCELLULOSE SODIUM
     Dosage: 1 DROP 4 TIMES IN A DAY FOR 30 DAYS
     Route: 047
     Dates: start: 20240122

REACTIONS (2)
  - No adverse event [Unknown]
  - Off label use [Unknown]

NARRATIVE: CASE EVENT DATE: 20240123
